FAERS Safety Report 10078298 (Version 1)
Quarter: 2014Q2

REPORT INFORMATION
  Report Type: Spontaneous
  Country: US (occurrence: US)
  Receive Date: 20140415
  Receipt Date: 20140415
  Transmission Date: 20141212
  Serious: Yes (Hospitalization)
  Sender: FDA-Public Use
  Company Number: US-BRISTOL-MYERS SQUIBB COMPANY-20597811

PATIENT
  Age: 82 Year
  Sex: Male

DRUGS (1)
  1. HYDREA [Suspect]
     Dates: start: 2012

REACTIONS (1)
  - Cerebrovascular accident [Unknown]
